FAERS Safety Report 16729293 (Version 2)
Quarter: 2019Q3

REPORT INFORMATION
  Report Type: Spontaneous
  Country: US (occurrence: US)
  Receive Date: 20190822
  Receipt Date: 20190830
  Transmission Date: 20191005
  Serious: Yes (Hospitalization)
  Sender: FDA-Public Use
  Company Number: US-PFIZER INC-2019195038

PATIENT
  Age: 71 Year
  Sex: Female
  Weight: 117.9 kg

DRUGS (2)
  1. LYRICA [Suspect]
     Active Substance: PREGABALIN
     Indication: NEUROPATHY PERIPHERAL
     Dosage: UNK
  2. LYRICA [Suspect]
     Active Substance: PREGABALIN
     Dosage: 50 MG, 4X/DAY
     Route: 048
     Dates: start: 20180809

REACTIONS (4)
  - Malaise [Unknown]
  - Intestinal obstruction [Unknown]
  - Post procedural infection [Unknown]
  - Volvulus [Unknown]

NARRATIVE: CASE EVENT DATE: 2019
